FAERS Safety Report 17206551 (Version 1)
Quarter: 2020Q1

REPORT INFORMATION
  Report Type: Spontaneous
  Country: US (occurrence: US)
  Receive Date: 20191226
  Receipt Date: 20191226
  Transmission Date: 20200409
  Serious: Yes (Disabling)
  Sender: FDA-Public Use
  Company Number: None

PATIENT
  Weight: 86.18 kg

DRUGS (1)
  1. GADAVIST [Suspect]
     Active Substance: GADOBUTROL
     Dates: start: 20190404, end: 20190404

REACTIONS (10)
  - Visual impairment [None]
  - Urticaria [None]
  - Injection related reaction [None]
  - Dizziness [None]
  - Dyspnoea [None]
  - Feeling abnormal [None]
  - Headache [None]
  - Arthralgia [None]
  - Urine analysis abnormal [None]
  - Impaired work ability [None]

NARRATIVE: CASE EVENT DATE: 20190404
